FAERS Safety Report 9456606 (Version 2)
Quarter: 2013Q3

REPORT INFORMATION
  Report Type: Spontaneous
  Country: US (occurrence: US)
  Receive Date: 20130813
  Receipt Date: 20130827
  Transmission Date: 20140515
  Serious: Yes (Other)
  Sender: FDA-Public Use
  Company Number: US-MYLANLABS-2013S1017613

PATIENT
  Age: 23 Year
  Sex: Male

DRUGS (15)
  1. REMIFENTANIL [Suspect]
     Indication: MAINTENANCE OF ANAESTHESIA
     Dosage: 0.2MCG/KG/MIN
  2. REMIFENTANIL [Interacting]
     Indication: MAINTENANCE OF ANAESTHESIA
     Dosage: BOLUS (100MCG)
  3. PROPOFOL [Suspect]
     Indication: ANAESTHESIA
     Dosage: 150MG
  4. PROPOFOL [Suspect]
     Indication: MAINTENANCE OF ANAESTHESIA
     Dosage: 150MG
  5. PROPOFOL [Suspect]
     Indication: ANAESTHESIA
     Dosage: 0.1MCG/KG/MIN
  6. PROPOFOL [Suspect]
     Indication: MAINTENANCE OF ANAESTHESIA
     Dosage: 0.1MCG/KG/MIN
  7. PROPOFOL [Suspect]
     Indication: ANAESTHESIA
     Dosage: 50MG
  8. PROPOFOL [Suspect]
     Indication: MAINTENANCE OF ANAESTHESIA
     Dosage: 50MG
  9. FLUOXETINE [Interacting]
     Indication: DEPRESSION
  10. FLUOXETINE [Interacting]
     Indication: ANXIETY
  11. FENTANYL [Interacting]
     Indication: ANAESTHESIA
  12. DIAZEPAM [Concomitant]
     Indication: DEPRESSION
     Dosage: AT NIGHT FOR DEPRESSION AND ANXIETY
  13. MIDAZOLAM [Concomitant]
     Indication: SEDATION
     Dosage: RECEIVED 1 HOUR BEFORE SURGERY
     Route: 042
  14. BUPIVACAINE [Concomitant]
     Indication: ANAESTHESIA
     Dosage: 30ML OF 25%; INDICATION: TO EXPAND TISSURE PLANE DEEP TO FASCIA ILIACA
  15. EPINEPHRINE [Concomitant]
     Indication: ANAESTHESIA
     Dosage: 0.005MG/ML; INDICATION: TO EXPAND TISSURE PLANE DEEP TO FASCIA ILIACA

REACTIONS (2)
  - Serotonin syndrome [Recovered/Resolved]
  - Drug interaction [Recovered/Resolved]
